FAERS Safety Report 8779495 (Version 1)
Quarter: 2012Q4

REPORT INFORMATION
  Report Type: 
  Country: US (occurrence: US)
  Receive Date: 20120912
  Receipt Date: 20120912
  Transmission Date: 20130627
  Serious: Yes (Other)
  Sender: FDA-Public Use
  Company Number: US-009507513-1209USA003045

PATIENT

DRUGS (2)
  1. ISENTRESS [Suspect]
     Route: 048
  2. REYATAZ [Suspect]
     Dosage: 800 mg, qd
     Dates: start: 2011

REACTIONS (6)
  - Cholelithiasis [Unknown]
  - Jaundice [Unknown]
  - Malaise [Unknown]
  - Anaemia [Unknown]
  - Thrombophlebitis [Unknown]
  - Pyrexia [Unknown]
